FAERS Safety Report 4424256-4 (Version None)
Quarter: 2004Q3

REPORT INFORMATION
  Report Type: 
  Country: None (occurrence: None)
  Receive Date: 20040810
  Receipt Date: 20040810
  Transmission Date: 20050211
  Serious: Yes (Hospitalization)
  Sender: FDA-Public Use
  Company Number: None

PATIENT
  Sex: Male
  Weight: 112 kg

DRUGS (11)
  1. PACLITAXEL [Suspect]
     Indication: NON-SMALL CELL LUNG CANCER
     Dosage: 455 MG IV Q 21 D
     Route: 042
     Dates: start: 20040722
  2. GEMCITABINE [Suspect]
     Indication: NON-SMALL CELL LUNG CANCER
     Dosage: 2270 MG IV D 1 AND D 8 21 D CYCLE
     Route: 042
     Dates: start: 20040722
  3. GEMCITABINE [Suspect]
     Indication: NON-SMALL CELL LUNG CANCER
     Dosage: 2270 MG IV D 1 AND D 8 21 D CYCLE
     Route: 042
     Dates: start: 20040729
  4. CIPRO [Concomitant]
  5. PROSCAR [Concomitant]
  6. FLOMAX [Concomitant]
  7. COLACE [Concomitant]
  8. METOPROLOL [Concomitant]
  9. ALLEGRA [Concomitant]
  10. PREVACID [Concomitant]
  11. OXYCODONE HCL [Concomitant]

REACTIONS (5)
  - ILEUS PARALYTIC [None]
  - NEUTROPENIA [None]
  - PROSTATITIS [None]
  - PYREXIA [None]
  - URINARY RETENTION [None]
